FAERS Safety Report 8262707-8 (Version None)
Quarter: 2012Q2

REPORT INFORMATION
  Report Type: 
  Country: None (occurrence: None)
  Receive Date: 20120405
  Receipt Date: 20120404
  Transmission Date: 20120825
  Serious: Yes (Death, Other)
  Sender: FDA-Public Use
  Company Number: PHHY2012GB023875

PATIENT
  Age: 25 Year
  Sex: Female

DRUGS (5)
  1. MIDAZOLAM [Concomitant]
     Indication: SEDATION
     Dates: start: 20111001
  2. PROPRANOLOL [Suspect]
     Indication: ANXIETY
     Dosage: 20 MG, UNK
     Route: 048
     Dates: start: 20111001, end: 20111001
  3. SUXAMETHONIUM [Concomitant]
     Dates: start: 20111001
  4. MORPHINE [Concomitant]
     Indication: SEDATION
  5. ACTIVASE [Suspect]
     Indication: PULMONARY EMBOLISM
     Dosage: 50 MG, BID
     Route: 042
     Dates: start: 20111001, end: 20111001

REACTIONS (22)
  - PULSELESS ELECTRICAL ACTIVITY [None]
  - WHITE BLOOD CELL COUNT INCREASED [None]
  - CHEST PAIN [None]
  - PULMONARY EMBOLISM [None]
  - ELECTROCARDIOGRAM QT PROLONGED [None]
  - DYSPNOEA [None]
  - METABOLIC ACIDOSIS [None]
  - PLEURAL EFFUSION [None]
  - HYPOXIA [None]
  - HAEMORRHAGE [None]
  - CARDIAC ARREST [None]
  - PULMONARY CONGESTION [None]
  - ELECTROCARDIOGRAM ST SEGMENT ELEVATION [None]
  - ARTERIOSCLEROSIS [None]
  - NEUTROPHIL COUNT INCREASED [None]
  - ABDOMINAL PAIN [None]
  - TACHYCARDIA [None]
  - VOMITING [None]
  - ANXIETY [None]
  - PHAEOCHROMOCYTOMA [None]
  - HYPERTENSION [None]
  - HAEMOGLOBIN DECREASED [None]
